FAERS Safety Report 5844527-4 (Version None)
Quarter: 2008Q3

REPORT INFORMATION
  Report Type: 
  Country: None (occurrence: None)
  Receive Date: 20080812
  Receipt Date: 20080729
  Transmission Date: 20090109
  Serious: No
  Sender: FDA-Public Use
  Company Number: 017604

PATIENT
  Age: 20 Year
  Sex: Female
  Weight: 65.8 kg

DRUGS (3)
  1. CLARAVIS [Suspect]
     Dosage: 40 MG QD ORAL; 20 MG TID ORAL
     Route: 048
     Dates: end: 20070610
  2. CLARAVIS [Suspect]
     Dosage: 40 MG QD ORAL; 20 MG TID ORAL
     Route: 048
     Dates: start: 20070222
  3. ORTHO TRI-CYCLEN [Concomitant]

REACTIONS (5)
  - DRUG EXPOSURE BEFORE PREGNANCY [None]
  - MENSTRUATION IRREGULAR [None]
  - RASH ERYTHEMATOUS [None]
  - TREATMENT NONCOMPLIANCE [None]
  - UNINTENDED PREGNANCY [None]
